FAERS Safety Report 9887506 (Version 1)
Quarter: 2014Q1

REPORT INFORMATION
  Report Type: Spontaneous
  Country: US (occurrence: US)
  Receive Date: 20140211
  Receipt Date: 20140211
  Transmission Date: 20141002
  Serious: No
  Sender: FDA-Public Use
  Company Number: US-009507513-1402USA002614

PATIENT
  Age: 21 Year
  Sex: Female
  Weight: 56.69 kg

DRUGS (1)
  1. NUVARING [Suspect]
     Indication: CONTRACEPTION
     Dosage: 1 RING
     Route: 067
     Dates: start: 201308, end: 20140205

REACTIONS (3)
  - Vulvovaginal discomfort [Recovered/Resolved]
  - Device expulsion [Recovered/Resolved]
  - Device breakage [Unknown]
